FAERS Safety Report 18841429 (Version 1)
Quarter: 2021Q1

REPORT INFORMATION
  Report Type: Report from Study
  Country: US (occurrence: US)
  Receive Date: 20210203
  Receipt Date: 20210203
  Transmission Date: 20210419
  Serious: Yes (Other)
  Sender: FDA-Public Use
  Company Number: US-TAKEDA-US201942808

PATIENT
  Sex: Female

DRUGS (1)
  1. GAMMAGARD LIQUID [Suspect]
     Active Substance: HUMAN IMMUNOGLOBULIN G
     Indication: IMMUNODEFICIENCY COMMON VARIABLE
     Route: 065

REACTIONS (6)
  - Inappropriate schedule of product administration [Unknown]
  - Impaired gastric emptying [Unknown]
  - Illness [Unknown]
  - COVID-19 [Unknown]
  - Autoimmune disorder [Unknown]
  - Influenza [Unknown]
